FAERS Safety Report 26107155 (Version 2)
Quarter: 2025Q4

REPORT INFORMATION
  Report Type: Spontaneous
  Country: ZA (occurrence: ZA)
  Receive Date: 20251201
  Receipt Date: 20251211
  Transmission Date: 20260117
  Serious: Yes (Other)
  Sender: SANOFI AVENTIS
  Company Number: ZA-SA-2025SA357337

PATIENT
  Sex: Male

DRUGS (1)
  1. CEREZYME [Suspect]
     Active Substance: IMIGLUCERASE
     Dosage: 400 U, QOW
     Route: 065

REACTIONS (5)
  - Thrombocytopenia [Unknown]
  - Splenomegaly [Unknown]
  - Epistaxis [Unknown]
  - Anaemia [Unknown]
  - Drug ineffective [Unknown]
